FAERS Safety Report 14201840 (Version 1)
Quarter: 2017Q4

REPORT INFORMATION
  Report Type: Spontaneous
  Country: US (occurrence: US)
  Receive Date: 20171117
  Receipt Date: 20171117
  Transmission Date: 20180321
  Serious: No
  Sender: FDA-Public Use
  Company Number: US-G+W LABS-GW2017US000075

PATIENT

DRUGS (1)
  1. DESONIDE. [Suspect]
     Active Substance: DESONIDE
     Indication: DRY EYE
     Dosage: 0.05 %, TID
     Route: 061
     Dates: start: 201701

REACTIONS (4)
  - Eye pain [Recovered/Resolved]
  - Dermatitis contact [Recovered/Resolved]
  - Eye swelling [Recovered/Resolved]
  - Off label use [Recovered/Resolved]
